FAERS Safety Report 16326329 (Version 1)
Quarter: 2019Q2

REPORT INFORMATION
  Report Type: Spontaneous
  Country: US (occurrence: US)
  Receive Date: 20190517
  Receipt Date: 20190517
  Transmission Date: 20190711
  Serious: Yes (Other)
  Sender: FDA-Public Use
  Company Number: US-PFIZER INC-2019203100

PATIENT
  Age: 38 Year
  Sex: Male
  Weight: 92 kg

DRUGS (11)
  1. XANAX [Concomitant]
     Active Substance: ALPRAZOLAM
     Indication: ANXIETY
     Dosage: 2 MG, 1X/DAY
     Route: 048
  2. LATUDA [Concomitant]
     Active Substance: LURASIDONE HYDROCHLORIDE
     Indication: BIPOLAR DISORDER
     Dosage: 120 MG, 1X/DAY (ONCE AT NIGHT)
     Route: 048
  3. ABILIFY [Concomitant]
     Active Substance: ARIPIPRAZOLE
     Indication: AUTISM SPECTRUM DISORDER
     Dosage: 10 MG, 1X/DAY (ONCE PER NIGHT)
     Route: 048
  4. ONDANSETRON [Concomitant]
     Active Substance: ONDANSETRON
     Indication: NAUSEA
     Dosage: 4 MG, AS NEEDED (4 MG, DISSOLVING TABLET, ONCE ONLY AS NEEDED)
     Route: 048
  5. SERTRALINE [Concomitant]
     Active Substance: SERTRALINE HYDROCHLORIDE
     Indication: OBSESSIVE-COMPULSIVE DISORDER
  6. CHLORDIAZEPOXIDE. [Concomitant]
     Active Substance: CHLORDIAZEPOXIDE
     Dosage: UNK
  7. METHYL PHENIDATE [METHYLPHENIDATE] [Concomitant]
     Indication: ATTENTION DEFICIT/HYPERACTIVITY DISORDER
     Dosage: 20 MG, 2X/DAY
  8. TRILEPTAL [Concomitant]
     Active Substance: OXCARBAZEPINE
     Indication: BIPOLAR DISORDER
     Dosage: 600 MG, 2X/DAY
     Route: 048
  9. LYRICA [Suspect]
     Active Substance: PREGABALIN
     Dosage: UNK
  10. SERTRALINE [Concomitant]
     Active Substance: SERTRALINE HYDROCHLORIDE
     Indication: DEPRESSION
     Dosage: 200 MG, 1X/DAY (200 MG, 2 TIMES 100 MG, BY MOUTH, ONCE PER DAY)
     Route: 048
  11. TRILEPTAL [Concomitant]
     Active Substance: OXCARBAZEPINE
     Indication: MOOD SWINGS

REACTIONS (18)
  - Vision blurred [Unknown]
  - Nausea [Unknown]
  - Hypoaesthesia [Unknown]
  - Diplopia [Unknown]
  - Influenza like illness [Unknown]
  - Burning sensation [Unknown]
  - Sensory disturbance [Unknown]
  - Discomfort [Unknown]
  - Pain [Unknown]
  - Lower motor neurone lesion [Unknown]
  - Multiple sclerosis [Unknown]
  - Neuralgia [Unknown]
  - Condition aggravated [Unknown]
  - Feeling abnormal [Unknown]
  - Arthralgia [Unknown]
  - Cerebral disorder [Unknown]
  - Pyrexia [Unknown]
  - Paraesthesia [Unknown]
